FAERS Safety Report 8568336-0 (Version None)
Quarter: 2012Q3

REPORT INFORMATION
  Report Type: 
  Country: None (occurrence: None)
  Receive Date: 20120803
  Receipt Date: 20120723
  Transmission Date: 20120928
  Serious: No
  Sender: FDA-Public Use
  Company Number: US-ABBOTT-12P-163-0959251-00

PATIENT
  Sex: Male
  Weight: 83.99 kg

DRUGS (2)
  1. GOUT CURE [Concomitant]
     Indication: SUPPLEMENTATION THERAPY
  2. NIASPAN [Suspect]
     Indication: BLOOD TRIGLYCERIDES INCREASED
     Dosage: WITH AFTERNOON MEAL
     Route: 048
     Dates: start: 20120718

REACTIONS (2)
  - FLUSHING [None]
  - FEELING HOT [None]
